FAERS Safety Report 9816993 (Version 1)
Quarter: 2014Q1

REPORT INFORMATION
  Report Type: Spontaneous
  Country: JP (occurrence: JP)
  Receive Date: 20140114
  Receipt Date: 20140114
  Transmission Date: 20141002
  Serious: Yes (Other)
  Sender: FDA-Public Use
  Company Number: JP-GLAXOSMITHKLINE-B0959503A

PATIENT
  Sex: Male

DRUGS (2)
  1. ALLERMIST [Suspect]
     Indication: RHINITIS
     Route: 045
     Dates: start: 201312
  2. UNKNOWN (FOR COMMON COLD) [Concomitant]
     Indication: NASOPHARYNGITIS
     Route: 065

REACTIONS (2)
  - Anuria [Recovering/Resolving]
  - Nasopharyngitis [Unknown]
